FAERS Safety Report 5903069-8 (Version None)
Quarter: 2008Q3

REPORT INFORMATION
  Report Type: 
  Country: None (occurrence: None)
  Receive Date: 20080930
  Receipt Date: 20080919
  Transmission Date: 20090109
  Serious: Yes (Death, Hospitalization)
  Sender: FDA-Public Use
  Company Number: US-ROCHE-587388

PATIENT
  Age: 62 Year
  Sex: Female

DRUGS (1)
  1. XELODA [Suspect]
     Indication: RECTAL CANCER
     Dosage: DOSE: 825 M2
     Route: 065

REACTIONS (3)
  - DEATH [None]
  - GASTROINTESTINAL INFLAMMATION [None]
  - THROMBOCYTOPENIA [None]
